FAERS Safety Report 16283982 (Version 3)
Quarter: 2019Q4

REPORT INFORMATION
  Report Type: Spontaneous
  Country: US (occurrence: US)
  Receive Date: 20190507
  Receipt Date: 20191209
  Transmission Date: 20200122
  Serious: Yes (Death, Other)
  Sender: FDA-Public Use
  Company Number: US-ALLERGAN-1919134US

PATIENT
  Sex: Male

DRUGS (2)
  1. CEFTAROLINE FOSAMIL - BP [Suspect]
     Active Substance: CEFTAROLINE FOSAMIL
     Indication: STAPHYLOCOCCAL INFECTION
     Dosage: 600 MG, BID, INFUSION ADMINISTERED OVER 1 H
     Route: 065
  2. CEFTAROLINE FOSAMIL - BP [Suspect]
     Active Substance: CEFTAROLINE FOSAMIL
     Indication: SALVAGE THERAPY

REACTIONS (4)
  - Gastrointestinal haemorrhage [Fatal]
  - Product use in unapproved indication [Unknown]
  - Acute respiratory failure [Fatal]
  - Off label use [Unknown]
